FAERS Safety Report 24346529 (Version 1)
Quarter: 2024Q3

REPORT INFORMATION
  Report Type: Spontaneous
  Country: US (occurrence: US)
  Receive Date: 20240921
  Receipt Date: 20240921
  Transmission Date: 20241016
  Serious: No
  Sender: CIPLA
  Company Number: US-CIPLA LTD.-2023US07542

PATIENT

DRUGS (12)
  1. ALENDRONATE [Suspect]
     Active Substance: ALENDRONATE SODIUM
     Indication: Bone disorder
     Dosage: 70 MILLIGRAM (1 TABLET), WEEKLY
     Route: 048
     Dates: start: 202311
  2. BUSPIRONE [Concomitant]
     Active Substance: BUSPIRONE HYDROCHLORIDE
     Indication: Depression
     Dosage: 10 MILLIGRAM, BID (1 TABLET ONCE IN THE MORNING AND ONCE AT NIGHT)
     Route: 065
  3. BUSPIRONE [Concomitant]
     Active Substance: BUSPIRONE HYDROCHLORIDE
     Indication: Neuralgia
  4. SIMVASTATIN [Concomitant]
     Active Substance: SIMVASTATIN
     Indication: Hypertension
     Dosage: 40 MILLIGRAM, QD (1 TABLET AT NIGHT)
     Route: 065
  5. ELIQUIS [Concomitant]
     Active Substance: APIXABAN
     Indication: Atrial fibrillation
     Dosage: 5 MILLIGRAM, BID, 1 TABLET ONCE IN THE MORNING AND ONCE AT NIGHT
     Route: 065
  6. PROTONIX [Concomitant]
     Active Substance: PANTOPRAZOLE SODIUM
     Indication: Dyspepsia
     Dosage: 20 MILLIGRAM, QD (ONCE A DAY)
     Route: 065
  7. METOPROLOL TARTRATE [Concomitant]
     Active Substance: METOPROLOL TARTRATE
     Indication: Product used for unknown indication
     Dosage: 75 MILLIGRAM, QD (1 TABLET ONCE A DAY)
     Route: 065
  8. CITALOPRAM HBR [Concomitant]
     Indication: Depression
     Dosage: 20 MILLIGRAM, QD (ONCE DAILY)
     Route: 065
  9. BUMETANIDE [Concomitant]
     Active Substance: BUMETANIDE
     Indication: Joint swelling
     Dosage: 1 MILLIGRAM, QOD (1 TABLET EVERY OTHER DAY)
     Route: 065
     Dates: start: 2013
  10. BUMETANIDE [Concomitant]
     Active Substance: BUMETANIDE
     Indication: Diuretic therapy
  11. TYLENOL EXTRA STRENGTH [Concomitant]
     Active Substance: ACETAMINOPHEN
     Indication: Pain
     Dosage: 500 MILLIGRAM, 2 TABLETS AS NEEDED
     Route: 065
  12. POTASSIUM [Concomitant]
     Active Substance: POTASSIUM
     Indication: Diuretic therapy
     Dosage: 10 MILLIGRAM, QOD (EVERY OTHER DAY)
     Route: 065
     Dates: start: 2013

REACTIONS (1)
  - Product dose omission issue [Unknown]

NARRATIVE: CASE EVENT DATE: 20231101
